FAERS Safety Report 24818718 (Version 1)
Quarter: 2025Q1

REPORT INFORMATION
  Report Type: Spontaneous
  Country: US (occurrence: None)
  Receive Date: 20250107
  Receipt Date: 20250107
  Transmission Date: 20250409
  Serious: Yes (Hospitalization)
  Sender: FDA-CTU
  Company Number: None

PATIENT
  Age: 26 Year
  Sex: Female
  Weight: 91.35 kg

DRUGS (3)
  1. CAPLYTA [Suspect]
     Active Substance: LUMATEPERONE
     Indication: Bipolar disorder
     Dosage: OTHER QUANTITY : 1 TABLET(S);?FREQUENCY : AT BEDTIME;?
     Route: 048
     Dates: start: 20241018, end: 20250102
  2. ZOLOFT [Concomitant]
     Active Substance: SERTRALINE HYDROCHLORIDE
  3. lamotrigne [Concomitant]

REACTIONS (6)
  - Tremor [None]
  - Seizure [None]
  - Dyspnoea [None]
  - Body temperature increased [None]
  - Hyperhidrosis [None]
  - Musculoskeletal stiffness [None]

NARRATIVE: CASE EVENT DATE: 20250101
